FAERS Safety Report 4445473-3 (Version None)
Quarter: 2004Q2

REPORT INFORMATION
  Report Type: 
  Country: None (occurrence: None)
  Receive Date: 20040428
  Receipt Date: 20030813
  Transmission Date: 20050107
  Serious: Yes (Other)
  Sender: FDA-Public Use
  Company Number: 200310167BBE

PATIENT
  Age: 54 Year
  Sex: Female
  Weight: 65.7716 kg

DRUGS (6)
  1. GAMIMUNE N 10% [Suspect]
     Indication: CHRONIC INFLAMMATORY DEMYELINATING POLYRADICULONEUROPATHY
     Dosage: 40 G, OM, INTRAVENOUS
     Route: 042
     Dates: start: 20030111
  2. ZOLOFT [Concomitant]
  3. ACCUPRIL [Concomitant]
  4. PREMPRO [Concomitant]
  5. PRAVACHOL [Concomitant]
  6. TYLENOL [Concomitant]

REACTIONS (4)
  - ANAPHYLACTOID REACTION [None]
  - HOARSENESS [None]
  - PRURITUS [None]
  - URTICARIA [None]
